FAERS Safety Report 22114602 (Version 1)
Quarter: 2023Q1

REPORT INFORMATION
  Report Type: Spontaneous
  Country: None (occurrence: FR)
  Receive Date: 20230320
  Receipt Date: 20230320
  Transmission Date: 20230418
  Serious: Yes (Hospitalization, Other)
  Sender: FDA-Public Use
  Company Number: FR-B.Braun Medical Inc.-2139264

PATIENT
  Age: 68 Year
  Sex: Female

DRUGS (3)
  1. ACETAMINOPHEN [Suspect]
     Active Substance: ACETAMINOPHEN
  2. APIXABAN [Suspect]
     Active Substance: APIXABAN
  3. TRAMADOL [Suspect]
     Active Substance: TRAMADOL

REACTIONS (1)
  - Neutropenia [Not Recovered/Not Resolved]
